FAERS Safety Report 7541669-2 (Version None)
Quarter: 2011Q2

REPORT INFORMATION
  Report Type: 
  Country: None (occurrence: None)
  Receive Date: 20110603
  Receipt Date: 20110524
  Transmission Date: 20111010
  Serious: Yes (Other)
  Sender: FDA-Public Use
  Company Number: CIP11001294

PATIENT
  Sex: Female

DRUGS (2)
  1. ALENDRONATE SODIUM [Suspect]
     Dosage: , ORAL
     Route: 048
  2. DIDRONEL [Suspect]
     Dosage: ORAL
     Route: 048

REACTIONS (1)
  - FEMUR FRACTURE [None]
